FAERS Safety Report 13652082 (Version 2)
Quarter: 2018Q2

REPORT INFORMATION
  Report Type: Spontaneous
  Country: US (occurrence: US)
  Receive Date: 20170614
  Receipt Date: 20180517
  Transmission Date: 20180711
  Serious: Yes (Other)
  Sender: FDA-Public Use
  Company Number: US-JNJFOC-20170604674

PATIENT
  Sex: Female

DRUGS (5)
  1. HUMIRA [Suspect]
     Active Substance: ADALIMUMAB
     Indication: PSORIATIC ARTHROPATHY
     Route: 058
     Dates: end: 201612
  2. HYDROCODONE [Concomitant]
     Active Substance: HYDROCODONE
     Indication: PRODUCT USED FOR UNKNOWN INDICATION
     Dosage: 1/2 ONCE OR TWICE A DAY
     Route: 065
  3. TYLENOL [Suspect]
     Active Substance: ACETAMINOPHEN
     Route: 065
  4. TYLENOL [Suspect]
     Active Substance: ACETAMINOPHEN
     Indication: PRODUCT USED FOR UNKNOWN INDICATION
     Route: 065
     Dates: end: 201702
  5. HUMIRA [Suspect]
     Active Substance: ADALIMUMAB
     Indication: PSORIASIS
     Route: 058
     Dates: end: 201612

REACTIONS (17)
  - Ear congestion [Recovered/Resolved]
  - Sensitivity to weather change [Not Recovered/Not Resolved]
  - Upper-airway cough syndrome [Not Recovered/Not Resolved]
  - Fatigue [Unknown]
  - Feeling abnormal [Unknown]
  - Time perception altered [Not Recovered/Not Resolved]
  - Upper respiratory tract infection [Recovered/Resolved]
  - Nasopharyngitis [Unknown]
  - Oropharyngeal pain [Unknown]
  - Overweight [Not Recovered/Not Resolved]
  - Condition aggravated [Recovered/Resolved]
  - Bronchitis [Unknown]
  - Foot deformity [Recovered/Resolved]
  - Hepatic function abnormal [Not Recovered/Not Resolved]
  - Rhinorrhoea [Recovered/Resolved]
  - Abdominal pain upper [Unknown]
  - Memory impairment [Not Recovered/Not Resolved]

NARRATIVE: CASE EVENT DATE: 2016
